FAERS Safety Report 13778558 (Version 2)
Quarter: 2017Q4

REPORT INFORMATION
  Report Type: Spontaneous
  Country: US (occurrence: US)
  Receive Date: 20170721
  Receipt Date: 20171213
  Transmission Date: 20180320
  Serious: Yes (Hospitalization)
  Sender: FDA-Public Use
  Company Number: US-SUN PHARMACEUTICAL INDUSTRIES LTD-2017US-145910

PATIENT
  Age: 67 Year
  Sex: Male

DRUGS (4)
  1. LEUPROLIDE [Suspect]
     Active Substance: LEUPROLIDE
     Indication: PROSTATE CANCER
     Dosage: 45 MG EVERY 6 MONTHS
     Route: 058
     Dates: start: 201602
  2. BENZTROPINE [Concomitant]
     Active Substance: BENZTROPINE
     Indication: PSYCHOTIC DISORDER
     Dosage: 1 MG, BID
  3. HALOPERIDOL. [Concomitant]
     Active Substance: HALOPERIDOL
     Dosage: 20 MG, BID
     Route: 048
  4. HALOPERIDOL. [Concomitant]
     Active Substance: HALOPERIDOL
     Indication: PSYCHOTIC DISORDER
     Dosage: 15 MG, BID
     Route: 048

REACTIONS (1)
  - Psychotic disorder [Recovering/Resolving]
